FAERS Safety Report 5916054-7 (Version None)
Quarter: 2008Q4

REPORT INFORMATION
  Report Type: 
  Country: None (occurrence: None)
  Receive Date: 20081013
  Receipt Date: 20081008
  Transmission Date: 20090506
  Serious: Yes (Life-Threatening)
  Sender: FDA-Public Use
  Company Number: FR-BRISTOL-MYERS SQUIBB COMPANY-14363006

PATIENT
  Age: 86 Year
  Sex: Male

DRUGS (1)
  1. HYDREA [Suspect]
     Route: 048

REACTIONS (3)
  - ACTINIC KERATOSIS [None]
  - FUNGAL SKIN INFECTION [None]
  - SQUAMOUS CELL CARCINOMA [None]
